FAERS Safety Report 6801035-1 (Version None)
Quarter: 2010Q2

REPORT INFORMATION
  Report Type: 
  Country: None (occurrence: None)
  Receive Date: 20100624
  Receipt Date: 20100609
  Transmission Date: 20101027
  Serious: Yes (Other)
  Sender: FDA-Public Use
  Company Number: 2010-2116

PATIENT
  Age: 59 Year
  Sex: Male

DRUGS (1)
  1. APO-GO AMPOULES (APO-GO) (APOMORPHINE HYDROCHLORIDE) (APOMORPHINE HYDR [Suspect]
     Indication: DRUG USE FOR UNKNOWN INDICATION
     Dosage: 5.5MG/HOUR (5.5 MG,5.5MG/HOUR)

REACTIONS (2)
  - ACCIDENT [None]
  - APALLIC SYNDROME [None]
